FAERS Safety Report 4435804-2 (Version None)
Quarter: 2004Q3

REPORT INFORMATION
  Report Type: 
  Country: None (occurrence: None)
  Receive Date: 20040826
  Receipt Date: 20040813
  Transmission Date: 20050211
  Serious: Yes (Hospitalization)
  Sender: FDA-Public Use
  Company Number: S04-USA-04854-01

PATIENT
  Age: 64 Year
  Sex: Male
  Weight: 121.1104 kg

DRUGS (11)
  1. TIAZAC [Suspect]
     Indication: HYPERTENSION
     Dosage: 240 MG QD PO
     Route: 048
     Dates: start: 20040704, end: 20040804
  2. ATENOLOL [Concomitant]
  3. PAXIL [Concomitant]
  4. GLUCOPHAGE XR [Concomitant]
  5. VIOXX [Concomitant]
  6. BUMEX [Concomitant]
  7. PROSCAR [Concomitant]
  8. BETAMETHASONE CREAM [Concomitant]
  9. NIZORAL CREAM [Concomitant]
  10. MULTIVITAMIN [Concomitant]
  11. CARDURA [Concomitant]

REACTIONS (11)
  - ARTHRALGIA [None]
  - ATRIAL FIBRILLATION [None]
  - BACK PAIN [None]
  - BLOOD PRESSURE INADEQUATELY CONTROLLED [None]
  - BRADYCARDIA [None]
  - DYSPNOEA EXERTIONAL [None]
  - ELECTROCARDIOGRAM QT PROLONGED [None]
  - EXCORIATION [None]
  - OEDEMA PERIPHERAL [None]
  - SKIN DISCOLOURATION [None]
  - VENTRICULAR EXTRASYSTOLES [None]
